FAERS Safety Report 19762798 (Version 1)
Quarter: 2021Q3

REPORT INFORMATION
  Report Type: Spontaneous
  Country: US (occurrence: US)
  Receive Date: 20210828
  Receipt Date: 20210828
  Transmission Date: 20211014
  Serious: Yes (Hospitalization)
  Sender: FDA-Public Use
  Company Number: US-TEVA-2021-US-1945713

PATIENT
  Age: 64 Year
  Sex: Female

DRUGS (3)
  1. AUSTEDO [Suspect]
     Active Substance: DEUTETRABENAZINE
     Indication: TARDIVE DYSKINESIA
     Dates: start: 202105, end: 2021
  2. AUSTEDO [Suspect]
     Active Substance: DEUTETRABENAZINE
     Route: 065
  3. INGREZZA [Suspect]
     Active Substance: VALBENAZINE
     Route: 065

REACTIONS (1)
  - Muscular weakness [Unknown]
